FAERS Safety Report 5221300-1 (Version None)
Quarter: 2007Q1

REPORT INFORMATION
  Report Type: 
  Country: None (occurrence: None)
  Receive Date: 20070126
  Receipt Date: 20070115
  Transmission Date: 20070707
  Serious: Yes (Life-Threatening, Hospitalization)
  Sender: FDA-Public Use
  Company Number: JP-PFIZER INC-2006144055

PATIENT
  Sex: Male
  Weight: 41 kg

DRUGS (5)
  1. VFEND [Suspect]
     Indication: PNEUMONIA FUNGAL
     Dosage: DAILY DOSE:800MG
     Route: 048
     Dates: start: 20061114, end: 20061114
  2. VFEND [Suspect]
     Dosage: DAILY DOSE:600MG
     Route: 042
     Dates: start: 20061115, end: 20061117
  3. DIFLUCAN [Suspect]
     Indication: PNEUMONIA FUNGAL
     Dosage: DAILY DOSE:200MG
     Route: 048
     Dates: start: 20061111, end: 20061114
  4. MAXIPIME [Concomitant]
     Route: 042
     Dates: start: 20061110, end: 20061111
  5. MEROPEN [Concomitant]
     Route: 042

REACTIONS (5)
  - ASPIRATION [None]
  - CONDITION AGGRAVATED [None]
  - DRUG INEFFECTIVE [None]
  - INTERSTITIAL LUNG DISEASE [None]
  - PNEUMOTHORAX [None]
